FAERS Safety Report 7892211-8 (Version None)
Quarter: 2011Q4

REPORT INFORMATION
  Report Type: 
  Country: None (occurrence: None)
  Receive Date: 20111104
  Receipt Date: 20111025
  Transmission Date: 20120403
  Serious: Yes (Other)
  Sender: FDA-Public Use
  Company Number: US-ASTRAZENECA-2011SE64761

PATIENT
  Age: 71 Year
  Sex: Female

DRUGS (3)
  1. TOPROL-XL [Suspect]
     Route: 048
  2. ARIMIDEX [Suspect]
     Route: 048
  3. ACCOLATE [Suspect]
     Route: 048

REACTIONS (1)
  - NEOPLASM RECURRENCE [None]
